FAERS Safety Report 5518056-1 (Version None)
Quarter: 2007Q4

REPORT INFORMATION
  Report Type: 
  Country: None (occurrence: None)
  Receive Date: 20071115
  Receipt Date: 20071112
  Transmission Date: 20080405
  Serious: Yes (Hospitalization)
  Sender: FDA-Public Use
  Company Number: DE-JNJFOC-20071002175

PATIENT
  Sex: Female
  Weight: 80 kg

DRUGS (6)
  1. RISPERDAL [Suspect]
     Dosage: 0.5-1-1
     Route: 048
  2. RISPERDAL [Suspect]
     Indication: DRUG USE FOR UNKNOWN INDICATION
     Route: 048
  3. DOMINAL [Suspect]
     Dosage: 40 MG TABLETS 1.5-1-1.5
  4. DOMINAL [Suspect]
     Indication: DRUG USE FOR UNKNOWN INDICATION
  5. ZOPICION [Suspect]
  6. ZOPICION [Suspect]
     Indication: DRUG USE FOR UNKNOWN INDICATION

REACTIONS (2)
  - ACCIDENTAL OVERDOSE [None]
  - HYPOTENSION [None]
